FAERS Safety Report 7428840-5 (Version None)
Quarter: 2011Q2

REPORT INFORMATION
  Report Type: 
  Country: None (occurrence: None)
  Receive Date: 20110413
  Receipt Date: 20110330
  Transmission Date: 20111010
  Serious: Yes (Other)
  Sender: FDA-Public Use
  Company Number: 030418

PATIENT
  Sex: Female

DRUGS (3)
  1. LEVETIRACETAM [Suspect]
     Indication: EPILEPSY
     Dosage: 3000 MG, 40MG/KG BODY WT PER DAY TRANSPLACENTAL; 3000 MG, 40MG/KG BODY WT PER DAY TRANSMAMMARY
     Route: 064
  2. PRIMIDONE [Suspect]
     Indication: EPILEPSY
     Dosage: 187.5 MG, 2.5 MG/KG/DAY TRANSPLACENTAL; 187.5 MG, 2.5MG/KG DAY TRANSMAMMARY
     Route: 063
  3. PHENOBARBITAL TAB [Suspect]
     Indication: EPILEPSY
     Dosage: TRANSPLACETANL, GRADUALLY REDUCED BEFORE AND AFTER PREGNANCY TRANSMAMMARY
     Route: 063

REACTIONS (6)
  - MATERNAL DRUGS AFFECTING FOETUS [None]
  - DRUG WITHDRAWAL CONVULSIONS [None]
  - DRUG EXPOSURE DURING PREGNANCY [None]
  - PREGNANCY [None]
  - DRUG WITHDRAWAL SYNDROME NEONATAL [None]
  - DRUG EXPOSURE VIA BREAST MILK [None]
